FAERS Safety Report 7606061-0 (Version None)
Quarter: 2011Q3

REPORT INFORMATION
  Report Type: 
  Country: None (occurrence: None)
  Receive Date: 20110713
  Receipt Date: 20110629
  Transmission Date: 20111222
  Serious: Yes (Other)
  Sender: FDA-Public Use
  Company Number: US-ELI_LILLY_AND_COMPANY-US201106008655

PATIENT
  Sex: Female

DRUGS (3)
  1. HUMALOG [Suspect]
  2. HUMALOG MIX 75/25 [Suspect]
     Dosage: 10 U, OTHER
  3. HUMALOG MIX 75/25 [Suspect]
     Indication: TYPE 2 DIABETES MELLITUS
     Dosage: 22 U, EACH MORNING

REACTIONS (2)
  - BLINDNESS [None]
  - DRUG DISPENSING ERROR [None]
